FAERS Safety Report 15029525 (Version 1)
Quarter: 2018Q2

REPORT INFORMATION
  Report Type: Spontaneous
  Country: US (occurrence: US)
  Receive Date: 20180529
  Receipt Date: 20180529
  Transmission Date: 20180711
  Serious: No
  Sender: FDA-Public Use
  Company Number: None

PATIENT
  Age: 41 Year
  Sex: Female

DRUGS (1)
  1. VANCOMYCIN 1000 MG FRESENIUS KABI [Suspect]
     Active Substance: VANCOMYCIN HYDROCHLORIDE
     Indication: CELLULITIS
     Route: 042
     Dates: start: 20180511, end: 20180524

REACTIONS (3)
  - Pain [None]
  - Tinnitus [None]
  - Ear disorder [None]

NARRATIVE: CASE EVENT DATE: 20180524
